FAERS Safety Report 13080543 (Version 1)
Quarter: 2017Q1

REPORT INFORMATION
  Report Type: Spontaneous
  Country: BE (occurrence: BE)
  Receive Date: 20170103
  Receipt Date: 20170103
  Transmission Date: 20170428
  Serious: Yes (Other)
  Sender: FDA-Public Use
  Company Number: BE-JNJFOC-20161224372

PATIENT

DRUGS (2)
  1. DEXAMETHASONE. [Concomitant]
     Active Substance: DEXAMETHASONE
     Dosage: CO-MEDICATION GIVEN ON DAYS -1,1,2 AND 3
     Route: 065
  2. TRABECTEDIN [Suspect]
     Active Substance: TRABECTEDIN
     Indication: SARCOMA
     Dosage: 24-HOUR INTRAVENOUS INFUSION
     Route: 042

REACTIONS (5)
  - Device related infection [Unknown]
  - Injection site extravasation [Unknown]
  - Haemorrhage [Unknown]
  - Device related thrombosis [Unknown]
  - Pulmonary embolism [Unknown]
